FAERS Safety Report 4273495-4 (Version None)
Quarter: 2004Q1

REPORT INFORMATION
  Report Type: 
  Country: None (occurrence: None)
  Receive Date: 20040119
  Receipt Date: 20031121
  Transmission Date: 20041129
  Serious: Yes (Other)
  Sender: FDA-Public Use
  Company Number: AU-GLAXOSMITHKLINE-B0315774A

PATIENT
  Age: 65 Year
  Sex: Female
  Weight: 90 kg

DRUGS (7)
  1. AVANDIA [Suspect]
     Indication: DIABETES MELLITUS
     Dosage: 4MG PER DAY
     Route: 048
     Dates: start: 20031101, end: 20031121
  2. GLICLAZIDE [Concomitant]
     Indication: DIABETES MELLITUS
     Dosage: 160MG PER DAY
     Route: 048
  3. ATENOLOL [Concomitant]
     Indication: PAIN
     Dosage: 50MG PER DAY
     Route: 048
  4. SIMVASTATIN [Concomitant]
     Indication: HYPERTENSION
     Dosage: 40MG PER DAY
     Route: 048
  5. CLOPIDOGREL BISULPHATE [Concomitant]
     Indication: PAIN
     Dosage: 75MG PER DAY
     Route: 048
  6. TRANDOLAPRIL [Concomitant]
     Indication: HYPERTENSION
     Dosage: 1MG PER DAY
     Route: 048
  7. IRBESARTAN [Concomitant]
     Indication: HYPERTENSION
     Dosage: 150MG PER DAY
     Route: 048

REACTIONS (3)
  - ANGINA PECTORIS [None]
  - DYSPNOEA [None]
  - OEDEMA [None]
